FAERS Safety Report 9402790 (Version 1)
Quarter: 2013Q3

REPORT INFORMATION
  Report Type: Spontaneous
  Country: US (occurrence: None)
  Receive Date: 20130715
  Receipt Date: 20130715
  Transmission Date: 20140515
  Serious: Yes (Other)
  Sender: FDA-Public Use
  Company Number: None

PATIENT
  Age: 58 Year
  Sex: Male
  Weight: 104.33 kg

DRUGS (1)
  1. LYRICA [Suspect]
     Indication: ANXIETY
     Dosage: 150 MG BID PO
     Route: 048
     Dates: start: 20130506, end: 20130708

REACTIONS (6)
  - Heart rate decreased [None]
  - Blood pressure decreased [None]
  - Swelling face [None]
  - Local swelling [None]
  - Local swelling [None]
  - Deep vein thrombosis [None]
